FAERS Safety Report 19915100 (Version 1)
Quarter: 2021Q4

REPORT INFORMATION
  Report Type: Spontaneous
  Country: US (occurrence: US)
  Receive Date: 20211004
  Receipt Date: 20211004
  Transmission Date: 20220303
  Serious: No
  Sender: FDA-Public Use
  Company Number: US-OTSUKA-2019_036373

PATIENT
  Sex: Female

DRUGS (1)
  1. ARIPIPRAZOLE [Suspect]
     Active Substance: ARIPIPRAZOLE
     Indication: Product used for unknown indication
     Dosage: 1 MG, UNK
     Route: 065

REACTIONS (6)
  - Diabetes mellitus inadequate control [Unknown]
  - Depressed mood [Unknown]
  - Blood glucose increased [Unknown]
  - Diabetes mellitus [Unknown]
  - Anxiety [Unknown]
  - Glycosylated haemoglobin increased [Unknown]
